FAERS Safety Report 26127197 (Version 1)
Quarter: 2025Q4

REPORT INFORMATION
  Report Type: Spontaneous
  Country: US (occurrence: US)
  Receive Date: 20251205
  Receipt Date: 20251205
  Transmission Date: 20260117
  Serious: No
  Sender: MYLAN
  Company Number: US-MYLANLABS-2025M1101081

PATIENT
  Sex: Female

DRUGS (4)
  1. LATANOPROST [Suspect]
     Active Substance: LATANOPROST
     Indication: Product used for unknown indication
     Dosage: 2 GTT DROPS, PM (DAILY EVERY NIGHT, ONE DROP EACH EYES FOR ABOUT FOUR YEARS)
     Dates: start: 2025
  2. LATANOPROST [Suspect]
     Active Substance: LATANOPROST
     Dosage: 2 GTT DROPS, PM (DAILY EVERY NIGHT, ONE DROP EACH EYES FOR ABOUT FOUR YEARS)
     Route: 047
     Dates: start: 2025
  3. LATANOPROST [Suspect]
     Active Substance: LATANOPROST
     Dosage: 2 GTT DROPS, PM (DAILY EVERY NIGHT, ONE DROP EACH EYES FOR ABOUT FOUR YEARS)
     Route: 047
     Dates: start: 2025
  4. LATANOPROST [Suspect]
     Active Substance: LATANOPROST
     Dosage: 2 GTT DROPS, PM (DAILY EVERY NIGHT, ONE DROP EACH EYES FOR ABOUT FOUR YEARS)
     Dates: start: 2025

REACTIONS (2)
  - Accidental exposure to product [Unknown]
  - Device delivery system issue [Unknown]

NARRATIVE: CASE EVENT DATE: 20250101
